FAERS Safety Report 8004515-9 (Version None)
Quarter: 2011Q4

REPORT INFORMATION
  Report Type: 
  Country: None (occurrence: None)
  Receive Date: 20111221
  Receipt Date: 20111221
  Transmission Date: 20120403
  Serious: Yes (Hospitalization)
  Sender: FDA-Public Use
  Company Number: None

PATIENT
  Age: 72 Year
  Sex: Male
  Weight: 105.4 kg

DRUGS (16)
  1. DILANTIN [Suspect]
  2. VIT C [Concomitant]
  3. PHOSLO [Concomitant]
  4. BUMEX [Concomitant]
  5. CLONIDINE [Concomitant]
  6. LANTUS [Concomitant]
  7. LANTUS [Concomitant]
  8. ZYNC [Concomitant]
  9. ZANTAC [Concomitant]
  10. SINGULAIR [Concomitant]
  11. BENADRYL [Concomitant]
  12. M.V.I. [Concomitant]
  13. XOPENEX [Concomitant]
  14. DAPTOMYCIN [Suspect]
  15. THIAMINE HCL [Concomitant]
  16. PROTONIX [Concomitant]

REACTIONS (1)
  - DRUG ERUPTION [None]
